FAERS Safety Report 25537370 (Version 1)
Quarter: 2025Q3

REPORT INFORMATION
  Report Type: Report from Study
  Country: CO (occurrence: CO)
  Receive Date: 20250710
  Receipt Date: 20250710
  Transmission Date: 20251021
  Serious: Yes (Death, Other)
  Sender: NOVO NORDISK
  Company Number: CO-NOVOPROD-1471800

PATIENT
  Age: 70 Year
  Sex: Male

DRUGS (1)
  1. OZEMPIC [Suspect]
     Active Substance: SEMAGLUTIDE
     Indication: Type 2 diabetes mellitus
     Route: 058

REACTIONS (4)
  - Weight decreased [Unknown]
  - Decreased appetite [Unknown]
  - General physical health deterioration [Unknown]
  - Death [Fatal]
